FAERS Safety Report 16282468 (Version 5)
Quarter: 2019Q3

REPORT INFORMATION
  Report Type: Spontaneous
  Country: US (occurrence: US)
  Receive Date: 20190507
  Receipt Date: 20190919
  Transmission Date: 20191004
  Serious: Yes (Other)
  Sender: FDA-Public Use
  Company Number: US-PFIZER INC-2019188634

PATIENT
  Age: 29 Year
  Sex: Male
  Weight: 122 kg

DRUGS (3)
  1. DILANTIN [Suspect]
     Active Substance: PHENYTOIN
     Indication: EPILEPSY
     Dosage: 600 MG, DAILY
     Dates: start: 201806
  2. DILANTIN [Suspect]
     Active Substance: PHENYTOIN
     Indication: GENERALISED TONIC-CLONIC SEIZURE
     Dosage: 700 MG, 1X/DAY
     Dates: start: 20190530
  3. DILANTIN [Suspect]
     Active Substance: PHENYTOIN
     Indication: SEIZURE
     Dosage: 700 MG, DAILY (4 CAPSULES AT 10AM, 3 CAPSULES AT 6PM)
     Route: 048
     Dates: start: 201903

REACTIONS (3)
  - Anticonvulsant drug level decreased [Unknown]
  - Drug ineffective [Unknown]
  - Prescribed overdose [Unknown]

NARRATIVE: CASE EVENT DATE: 201903
